FAERS Safety Report 5270404-6 (Version None)
Quarter: 2007Q1

REPORT INFORMATION
  Report Type: 
  Country: None (occurrence: None)
  Receive Date: 20070320
  Receipt Date: 20070308
  Transmission Date: 20070707
  Serious: Yes (Other)
  Sender: FDA-Public Use
  Company Number: US-PFIZER INC-2007018494

PATIENT
  Age: 38 Year
  Sex: Female

DRUGS (11)
  1. LYRICA [Suspect]
     Indication: PAIN
  2. PROPRANOLOL [Concomitant]
  3. ALLEGRA [Concomitant]
     Dosage: DAILY DOSE:180MG
  4. CRESTOR [Concomitant]
     Dosage: DAILY DOSE:5MG
  5. XANAX [Concomitant]
     Dosage: DAILY DOSE:1MG
  6. LODINE XL [Concomitant]
     Dosage: DAILY DOSE:500MG
  7. ZANAFLEX [Concomitant]
     Dosage: DAILY DOSE:4MG
  8. ZANTAC [Concomitant]
     Dosage: DAILY DOSE:150MG
  9. LORTAB [Concomitant]
     Dosage: DAILY DOSE:7.5MG
  10. TRANXENE [Concomitant]
     Dosage: DAILY DOSE:7.5MG
  11. ALL OTHER THERAPEUTIC PRODUCTS [Concomitant]

REACTIONS (4)
  - CONVULSION [None]
  - FEELING DRUNK [None]
  - PARAESTHESIA [None]
  - PRESYNCOPE [None]
